FAERS Safety Report 11863122 (Version 1)
Quarter: 2015Q4

REPORT INFORMATION
  Report Type: Spontaneous
  Country: JP (occurrence: JP)
  Receive Date: 20151223
  Receipt Date: 20151223
  Transmission Date: 20160305
  Serious: Yes (Hospitalization)
  Sender: FDA-Public Use
  Company Number: PHJP2015JP023098

PATIENT
  Age: 78 Year
  Sex: Male

DRUGS (3)
  1. ONBREZ INHALATION CAPSUL [Suspect]
     Active Substance: INDACATEROL
     Indication: PULMONARY FIBROSIS
  2. ONBREZ INHALATION CAPSUL [Suspect]
     Active Substance: INDACATEROL
     Indication: INTERSTITIAL LUNG DISEASE
     Dosage: UNK
     Route: 055
  3. ONBREZ INHALATION CAPSUL [Suspect]
     Active Substance: INDACATEROL
     Indication: EMPHYSEMA

REACTIONS (6)
  - Arthropathy [Unknown]
  - Pyelonephritis [Unknown]
  - Decreased appetite [Recovering/Resolving]
  - Abasia [Unknown]
  - Off label use [Unknown]
  - Interstitial lung disease [Recovering/Resolving]
